FAERS Safety Report 5953422-1 (Version None)
Quarter: 2008Q4

REPORT INFORMATION
  Report Type: 
  Country: None (occurrence: None)
  Receive Date: 20081114
  Receipt Date: 20081106
  Transmission Date: 20090506
  Serious: Yes (Hospitalization, Other)
  Sender: FDA-Public Use
  Company Number: US-MERCK-0809USA01271

PATIENT
  Age: 66 Year
  Sex: Female
  Weight: 54 kg

DRUGS (1)
  1. FOSAMAX [Suspect]
     Indication: OSTEOPOROSIS
     Route: 048
     Dates: start: 20000101, end: 20080617

REACTIONS (16)
  - ADVERSE EVENT [None]
  - CAROTID BRUIT [None]
  - CHEST PAIN [None]
  - DEPRESSION [None]
  - DYSPHAGIA [None]
  - FALL [None]
  - FEMUR FRACTURE [None]
  - FLUSHING [None]
  - HAEMORRHAGE [None]
  - MITRAL VALVE PROLAPSE [None]
  - MUSCLE INJURY [None]
  - RESORPTION BONE INCREASED [None]
  - SCAR PAIN [None]
  - SCOLIOSIS [None]
  - URINARY TRACT INFECTION [None]
  - VASCULAR INJURY [None]
